FAERS Safety Report 18025712 (Version 7)
Quarter: 2021Q2

REPORT INFORMATION
  Report Type: Report from Study
  Country: US (occurrence: US)
  Receive Date: 20200715
  Receipt Date: 20210604
  Transmission Date: 20210717
  Serious: Yes (Hospitalization)
  Sender: FDA-Public Use
  Company Number: US-INSMED, INC.-US-INS-19-03882

PATIENT

DRUGS (8)
  1. ARIKAYCE [Suspect]
     Active Substance: AMIKACIN
     Dosage: 590 MILLIGRAM, UNK
     Route: 055
     Dates: start: 2021, end: 2021
  2. CLARITHROMYCIN. [Concomitant]
     Active Substance: CLARITHROMYCIN
     Indication: PRODUCT USED FOR UNKNOWN INDICATION
  3. ARIKAYCE [Suspect]
     Active Substance: AMIKACIN
     Dosage: 590 MILLIGRAM, EVERY THREE OR TWO DAYS
     Route: 055
     Dates: start: 20200707
  4. ARIKAYCE [Suspect]
     Active Substance: AMIKACIN
     Dosage: UNK
     Route: 055
     Dates: start: 201912, end: 201912
  5. ARIKAYCE [Suspect]
     Active Substance: AMIKACIN
     Dosage: 590 MILLIGRAM, ONE VIAL EVERY 3?4 DAYS
     Route: 055
  6. ARIKAYCE [Suspect]
     Active Substance: AMIKACIN
     Indication: MYCOBACTERIUM AVIUM COMPLEX INFECTION
     Dosage: 590 MILLIGRAM, QD
     Route: 055
     Dates: start: 201912, end: 201912
  7. ARIKAYCE [Suspect]
     Active Substance: AMIKACIN
     Dosage: 590 MILLIGRAM, FOUR TIMES IN A WEEK
     Route: 055
     Dates: start: 20200512, end: 2020
  8. ARIKAYCE [Suspect]
     Active Substance: AMIKACIN
     Dosage: 590 MILLIGRAM, ONCE EVERY THREE DAYS
     Route: 055
     Dates: end: 202102

REACTIONS (9)
  - Pulmonary function test decreased [Unknown]
  - Off label use [Unknown]
  - Herpes zoster [Unknown]
  - Haemoptysis [Recovered/Resolved]
  - Therapy interrupted [Unknown]
  - Dyspnoea [Unknown]
  - Dyspnoea [Recovering/Resolving]
  - Hospitalisation [Unknown]
  - Underdose [Unknown]

NARRATIVE: CASE EVENT DATE: 20191205
